FAERS Safety Report 22953192 (Version 2)
Quarter: 2023Q4

REPORT INFORMATION
  Report Type: Spontaneous
  Country: NL (occurrence: NL)
  Receive Date: 20230918
  Receipt Date: 20231031
  Transmission Date: 20240109
  Serious: Yes (Disabling)
  Sender: FDA-Public Use
  Company Number: None

PATIENT
  Age: 50 Year
  Sex: Female
  Weight: 99 kg

DRUGS (3)
  1. LEVOFLOXACIN [Interacting]
     Active Substance: LEVOFLOXACIN
     Indication: Legionella infection
     Dosage: BID,(2 X PER DAY 1 PIECE 10 DAYS)
     Route: 065
     Dates: start: 20220613
  2. MOMETASONE [Interacting]
     Active Substance: MOMETASONE
     Indication: Ear disorder
     Dosage: UNK
     Route: 065
     Dates: start: 20220101
  3. LOSARTAN [Concomitant]
     Active Substance: LOSARTAN
     Indication: Hypertension
     Dosage: UNK
     Route: 065

REACTIONS (10)
  - Neuralgia [Not Recovered/Not Resolved]
  - Muscular weakness [Not Recovered/Not Resolved]
  - Myalgia [Not Recovered/Not Resolved]
  - Paraesthesia oral [Not Recovered/Not Resolved]
  - Parosmia [Not Recovered/Not Resolved]
  - Insomnia [Not Recovered/Not Resolved]
  - Dysgeusia [Recovered/Resolved]
  - Tendon rupture [Recovered/Resolved]
  - Paraesthesia [Not Recovered/Not Resolved]
  - Drug interaction [Unknown]
